FAERS Safety Report 12041029 (Version 1)
Quarter: 2016Q1

REPORT INFORMATION
  Report Type: Report from Study
  Country: US (occurrence: US)
  Receive Date: 20160208
  Receipt Date: 20160208
  Transmission Date: 20160526
  Serious: No
  Sender: FDA-Public Use
  Company Number: US-ABBVIE-15K-163-1529580-00

PATIENT
  Sex: Female

DRUGS (3)
  1. 6-MP [Suspect]
     Active Substance: MERCAPTOPURINE
     Route: 065
     Dates: end: 2015
  2. 6-MP [Suspect]
     Active Substance: MERCAPTOPURINE
     Indication: PRODUCT USED FOR UNKNOWN INDICATION
     Route: 065
  3. HUMIRA [Suspect]
     Active Substance: ADALIMUMAB
     Indication: CROHN^S DISEASE
     Route: 058
     Dates: start: 200912

REACTIONS (3)
  - Fatigue [Unknown]
  - Depression [Unknown]
  - Streptococcal infection [Recovered/Resolved]

NARRATIVE: CASE EVENT DATE: 2014
